FAERS Safety Report 17965830 (Version 2)
Quarter: 2020Q3

REPORT INFORMATION
  Report Type: Report from Study
  Country: CO (occurrence: CO)
  Receive Date: 20200630
  Receipt Date: 20200713
  Transmission Date: 20201103
  Serious: Yes (Other)
  Sender: FDA-Public Use
  Company Number: NVSC2020CO182144

PATIENT
  Sex: Female
  Weight: 53 kg

DRUGS (2)
  1. LOVASTATIN. [Concomitant]
     Active Substance: LOVASTATIN
     Indication: HYPERTENSION
     Dosage: 20 MG, QD (STARTED 10 YEARS AGO)
     Route: 048
  2. LOSARTAN POTASICO 50 MG SANDOZ [Suspect]
     Active Substance: LOSARTAN
     Indication: HYPERTENSION
     Dosage: 50 MG, Q12H (EVERY 12 HOURS, STARTED 10 YEARS AGO)
     Route: 048

REACTIONS (4)
  - Breast cancer [Unknown]
  - Product prescribing error [Unknown]
  - Lymph nodes scan abnormal [Recovered/Resolved]
  - Inappropriate schedule of product administration [Unknown]
